FAERS Safety Report 10418295 (Version 1)
Quarter: 2014Q3

REPORT INFORMATION
  Report Type: Spontaneous
  Country: US (occurrence: US)
  Receive Date: 20140829
  Receipt Date: 20140829
  Transmission Date: 20150326
  Serious: No
  Sender: FDA-Public Use
  Company Number: US-BAUSCH-BL-2014-001406

PATIENT
  Age: 55 Year
  Sex: Female
  Weight: 59.93 kg

DRUGS (4)
  1. TRAVATAN [Suspect]
     Active Substance: TRAVOPROST
     Indication: OPEN ANGLE GLAUCOMA
     Route: 047
     Dates: start: 201402, end: 20140311
  2. MULTIVITAMIN [Concomitant]
     Active Substance: VITAMINS
     Indication: PRODUCT USED FOR UNKNOWN INDICATION
  3. LATANOPROST. [Concomitant]
     Active Substance: LATANOPROST
     Indication: PRODUCT USED FOR UNKNOWN INDICATION
  4. DORZOLAMIDE HCL AND TIMOLOL MALEATE [Suspect]
     Active Substance: DORZOLAMIDE HYDROCHLORIDE\TIMOLOL MALEATE
     Indication: OPEN ANGLE GLAUCOMA
     Route: 047

REACTIONS (1)
  - Drug effect decreased [Unknown]
